FAERS Safety Report 23526763 (Version 1)
Quarter: 2024Q1

REPORT INFORMATION
  Report Type: Spontaneous
  Country: US (occurrence: US)
  Receive Date: 20240215
  Receipt Date: 20240215
  Transmission Date: 20240410
  Serious: Yes (Hospitalization, Other)
  Sender: FDA-Public Use
  Company Number: US-TARO PHARMACEUTICALS USA INC.-2024TAR00141

PATIENT
  Age: 27 Year
  Sex: Female

DRUGS (2)
  1. WARFARIN [Suspect]
     Active Substance: WARFARIN
     Indication: Heart disease congenital
     Dosage: 2 MG, NIGHTLY
     Route: 065
  2. WARFARIN [Suspect]
     Active Substance: WARFARIN
     Indication: Cardiac valve prosthesis user
     Dosage: 4 MG, NIGHTLY
     Route: 065

REACTIONS (6)
  - Caesarean section [Unknown]
  - Anticoagulation drug level above therapeutic [Unknown]
  - Anticoagulation drug level increased [Unknown]
  - Haematoma [Unknown]
  - Vaginal haemorrhage [Unknown]
  - Exposure during pregnancy [Unknown]
